FAERS Safety Report 12862065 (Version 2)
Quarter: 2017Q3

REPORT INFORMATION
  Report Type: Spontaneous
  Country: GR (occurrence: GR)
  Receive Date: 20161019
  Receipt Date: 20170921
  Transmission Date: 20171127
  Serious: Yes (Death, Other)
  Sender: FDA-Public Use
  Company Number: GR-CELGENEUS-GRC-2016102183

PATIENT

DRUGS (1)
  1. ABRAXANE [Suspect]
     Active Substance: PACLITAXEL
     Indication: GASTRIC CANCER
     Route: 041

REACTIONS (20)
  - Asthenia [Unknown]
  - Vomiting [Unknown]
  - Neurotoxicity [Unknown]
  - Anaemia [Unknown]
  - Pain [Unknown]
  - Alopecia [Unknown]
  - Diarrhoea [Unknown]
  - Thrombocytopenia [Unknown]
  - Fatigue [Unknown]
  - Constipation [Unknown]
  - Cardiac arrest [Fatal]
  - Lymphopenia [Unknown]
  - Dermatitis [Unknown]
  - Neutropenia [Unknown]
  - Respiratory tract infection [Unknown]
  - Nausea [Unknown]
  - Mucosal inflammation [Unknown]
  - Hyperglycaemia [Unknown]
  - Gastric cancer [Fatal]
  - Leukopenia [Unknown]
